FAERS Safety Report 6925154-4 (Version None)
Quarter: 2010Q3

REPORT INFORMATION
  Report Type: 
  Country: None (occurrence: None)
  Receive Date: 20100816
  Receipt Date: 20100804
  Transmission Date: 20110219
  Serious: Yes (Hospitalization)
  Sender: FDA-Public Use
  Company Number: IT-PFIZER INC-2010083426

PATIENT
  Age: 53 Year
  Sex: Male

DRUGS (3)
  1. ADRIBLASTINA [Suspect]
     Indication: NASOPHARYNGEAL CANCER
     Dosage: 180 MG TOTAL
     Route: 042
     Dates: start: 20100112, end: 20100112
  2. CISPLATIN EBEWE [Suspect]
     Indication: NASOPHARYNGEAL CANCER
     Dosage: 180 MG TOTAL
     Route: 042
     Dates: start: 20100112, end: 20100112
  3. ENALAPRIL [Concomitant]
     Dosage: 20 MG
     Route: 048

REACTIONS (6)
  - ASTHENIA [None]
  - HICCUPS [None]
  - NEUTROPENIA [None]
  - STOMATITIS [None]
  - THROMBOCYTOPENIA [None]
  - VOMITING [None]
